APPROVED DRUG PRODUCT: AKTEN
Active Ingredient: LIDOCAINE HYDROCHLORIDE
Strength: 3.5%
Dosage Form/Route: GEL;OPHTHALMIC
Application: N022221 | Product #001
Applicant: THEA PHARMA INC
Approved: Oct 7, 2008 | RLD: Yes | RS: Yes | Type: RX

PATENTS:
Patent 8759401 | Expires: Jul 24, 2026